FAERS Safety Report 5787683-9 (Version None)
Quarter: 2008Q2

REPORT INFORMATION
  Report Type: 
  Country: None (occurrence: None)
  Receive Date: 20080625
  Receipt Date: 20080219
  Transmission Date: 20081010
  Serious: No
  Sender: FDA-Public Use
  Company Number: US-ASTRAZENECA-2007UW25031

PATIENT
  Age: 75 Year
  Sex: Male

DRUGS (2)
  1. PULMICORT [Suspect]
     Indication: ASTHMA
     Route: 055
     Dates: start: 19970101
  2. ALLEGRA [Concomitant]
     Route: 048

REACTIONS (1)
  - ASTHMA [None]
